FAERS Safety Report 5628182-4 (Version None)
Quarter: 2008Q1

REPORT INFORMATION
  Report Type: 
  Country: None (occurrence: None)
  Receive Date: 20080131
  Receipt Date: 20071206
  Transmission Date: 20080703
  Serious: No
  Sender: FDA-Public Use
  Company Number: 163-21880-07111320

PATIENT
  Age: 75 Year
  Sex: Male

DRUGS (3)
  1. REVLIMID [Suspect]
     Indication: MULTIPLE MYELOMA
     Dosage: 25 MG, DAILY 21/28, ORAL
     Route: 048
     Dates: start: 20070810, end: 20071114
  2. DECADRON [Concomitant]
  3. IMODIUM [Concomitant]

REACTIONS (6)
  - ACNE [None]
  - CONSTIPATION [None]
  - DIARRHOEA [None]
  - HYPOAESTHESIA [None]
  - MUSCLE SPASMS [None]
  - SLEEP DISORDER [None]
